FAERS Safety Report 25577637 (Version 3)
Quarter: 2025Q4

REPORT INFORMATION
  Report Type: Spontaneous
  Country: JP (occurrence: JP)
  Receive Date: 20250718
  Receipt Date: 20251203
  Transmission Date: 20260117
  Serious: Yes (Hospitalization)
  Sender: MERCK SHARP & DOHME LLC
  Company Number: JP-009507513-2308740

PATIENT
  Age: 78 Year
  Sex: Female
  Weight: 42 kg

DRUGS (10)
  1. KEYTRUDA [Suspect]
     Active Substance: PEMBROLIZUMAB
     Indication: Uterine cancer
     Dosage: 200MG ONCE EVERY 3 WEEKS, 1 COURSE
     Route: 041
     Dates: start: 20250423, end: 20250503
  2. LENVIMA [Suspect]
     Active Substance: LENVATINIB
     Indication: Uterine cancer
     Dosage: 20MG TWICE A DAY
     Route: 048
     Dates: start: 20250423, end: 20250503
  3. Hirudoid Soft Ointment [Concomitant]
     Dosage: 0.3   DERMAL
  4. Keratinamin kowa [Concomitant]
     Dosage: 20%
     Route: 003
  5. Tsumura 107 Gosha-jinki-kan [Concomitant]
     Dosage: TIME INTERVAL: 0.33333333 DAYS: 2.5G, 3 TIMES A DAY
     Route: 048
  6. AMLODIPINE [Concomitant]
     Active Substance: AMLODIPINE BESYLATE
     Dosage: 2.5MG ONCE A DAY
     Route: 048
  7. EZETIMIBE [Concomitant]
     Active Substance: EZETIMIBE
     Dosage: 10MG ONCE A DAY
     Route: 048
  8. MAGNESIUM OXIDE [Concomitant]
     Active Substance: MAGNESIUM OXIDE
     Route: 048
  9. LOXOPROFEN SODIUM [Concomitant]
     Active Substance: LOXOPROFEN SODIUM
     Route: 048
  10. REBAMIPIDE [Concomitant]
     Active Substance: REBAMIPIDE
     Route: 048

REACTIONS (2)
  - Drug eruption [Recovering/Resolving]
  - Pyrexia [Recovering/Resolving]

NARRATIVE: CASE EVENT DATE: 20250503
